FAERS Safety Report 20387911 (Version 1)
Quarter: 2022Q1

REPORT INFORMATION
  Report Type: Spontaneous
  Country: US (occurrence: US)
  Receive Date: 20220128
  Receipt Date: 20220128
  Transmission Date: 20220423
  Serious: No
  Sender: FDA-Public Use
  Company Number: US-ALLERGAN-2136145US

PATIENT
  Age: 7 Decade
  Sex: Female

DRUGS (1)
  1. BOTOX [Suspect]
     Active Substance: ONABOTULINUMTOXINA
     Indication: Migraine
     Dosage: 5 UNITS, SINGLE
     Dates: start: 202110, end: 202110

REACTIONS (1)
  - Facial paralysis [Not Recovered/Not Resolved]
